FAERS Safety Report 5130628-5 (Version None)
Quarter: 2006Q4

REPORT INFORMATION
  Report Type: 
  Country: None (occurrence: None)
  Receive Date: 20061018
  Receipt Date: 20061018
  Transmission Date: 20070319
  Serious: Yes (Other)
  Sender: FDA-Public Use
  Company Number: None

PATIENT
  Age: 58 Year
  Sex: Female
  Weight: 72.5755 kg

DRUGS (1)
  1. COMPOUNDW FREEZE OFF WART REMOVA MEDTECH [Suspect]
     Indication: SKIN PAPILLOMA
     Dosage: 1 TIME ONLY
     Dates: start: 20060301, end: 20060301

REACTIONS (5)
  - APPLICATION SITE PAIN [None]
  - APPLICATION SITE REACTION [None]
  - CONDITION AGGRAVATED [None]
  - SKIN PAPILLOMA [None]
  - SQUAMOUS CELL CARCINOMA OF SKIN [None]
